FAERS Safety Report 5382538-6 (Version None)
Quarter: 2007Q3

REPORT INFORMATION
  Report Type: 
  Country: None (occurrence: None)
  Receive Date: 20070710
  Receipt Date: 20070629
  Transmission Date: 20080115
  Serious: Yes (Hospitalization, Other)
  Sender: FDA-Public Use
  Company Number: PHEH2006US05243

PATIENT
  Age: 66 Year
  Sex: Female
  Weight: 56.689 kg

DRUGS (15)
  1. COMBIPATCH [Suspect]
     Indication: MENOPAUSE
     Route: 062
     Dates: start: 19910101
  2. COMBIPATCH [Suspect]
     Dosage: 0.25 MG, UNK
     Route: 062
     Dates: start: 20000101, end: 20000101
  3. PROVERA [Suspect]
     Indication: MENOPAUSE
     Dosage: 5 MG FOR 14 DAYS EVERY OTHER MONTH
     Dates: start: 19950801, end: 19950901
  4. ESTRADERM [Suspect]
     Indication: MENOPAUSE
     Dosage: 0.05 MG, UNK
     Route: 062
     Dates: start: 19941201, end: 20020101
  5. VIVELLE [Suspect]
     Indication: MENOPAUSE
     Dosage: 0.05 MG, UNK
  6. AYGESTIN [Suspect]
  7. OGEN [Suspect]
     Indication: MENOPAUSE
  8. ESTRATEST [Suspect]
  9. PREMARIN [Suspect]
  10. PREMPRO [Suspect]
  11. ESTROGENIC SUBSTANCE [Suspect]
  12. ORAGEST [Suspect]
     Indication: MENOPAUSE
  13. PREMARIN [Suspect]
     Indication: MENOPAUSE
     Dates: start: 19900101, end: 19920101
  14. PREMARIN [Suspect]
     Dates: start: 19900101, end: 19920101
  15. PREMARIN [Suspect]
     Dates: start: 19900101, end: 19920101

REACTIONS (44)
  - ANXIETY [None]
  - BLOOD CHOLESTEROL INCREASED [None]
  - BLOOD THYROID STIMULATING HORMONE INCREASED [None]
  - BONE DENSITY DECREASED [None]
  - BREAST CANCER [None]
  - BREAST DISORDER [None]
  - BREAST MASS [None]
  - CATARACT [None]
  - CATARACT OPERATION [None]
  - COELIAC DISEASE [None]
  - COLONIC POLYP [None]
  - COUGH [None]
  - DEPRESSION [None]
  - EPIGASTRIC DISCOMFORT [None]
  - GASTRIC POLYPS [None]
  - GASTROOESOPHAGEAL REFLUX DISEASE [None]
  - GENITAL DISORDER FEMALE [None]
  - HEPATIC ENZYME INCREASED [None]
  - HEPATITIS [None]
  - HYPERTENSION [None]
  - HYPOKALAEMIA [None]
  - HYPOTHYROIDISM [None]
  - INJURY [None]
  - IRRITABLE BOWEL SYNDROME [None]
  - LACTOSE INTOLERANCE [None]
  - LOSS OF LIBIDO [None]
  - MACROGNATHIA [None]
  - MAMMOGRAM ABNORMAL [None]
  - MASTECTOMY [None]
  - MENIERE'S DISEASE [None]
  - MUCOSAL INFLAMMATION [None]
  - ORAL PAIN [None]
  - PLATELET COUNT DECREASED [None]
  - PLEURAL EFFUSION [None]
  - PNEUMONIA [None]
  - PYREXIA [None]
  - RESTLESS LEGS SYNDROME [None]
  - SMEAR CERVIX ABNORMAL [None]
  - TEMPERATURE INTOLERANCE [None]
  - TEMPOROMANDIBULAR JOINT SYNDROME [None]
  - THROMBOCYTHAEMIA [None]
  - VAGINAL DISCHARGE [None]
  - VAGINAL DISORDER [None]
  - VISION BLURRED [None]
